FAERS Safety Report 7419726-0 (Version None)
Quarter: 2011Q2

REPORT INFORMATION
  Report Type: 
  Country: None (occurrence: None)
  Receive Date: 20110418
  Receipt Date: 20110406
  Transmission Date: 20111010
  Serious: Yes (Hospitalization, Other)
  Sender: FDA-Public Use
  Company Number: DE-ELI_LILLY_AND_COMPANY-DE201101003271

PATIENT
  Age: 77 Year
  Sex: Female

DRUGS (9)
  1. CORTISONE [Concomitant]
  2. PANTOPRAZOLE [Concomitant]
  3. TRANSTEC [Concomitant]
     Dosage: 70 UG/H, UNK
  4. HEPARIN [Concomitant]
  5. LYRICA [Concomitant]
  6. IRON [Concomitant]
  7. FORTEO [Suspect]
     Indication: OSTEOPOROSIS
     Route: 058
     Dates: start: 20101118
  8. SPIRONOLACTONE [Concomitant]
  9. ANTIHYPERTENSIVES [Concomitant]

REACTIONS (8)
  - HIP SURGERY [None]
  - BACK PAIN [None]
  - CYSTITIS [None]
  - MOVEMENT DISORDER [None]
  - HOSPITALISATION [None]
  - GAIT DISTURBANCE [None]
  - ARTHROPATHY [None]
  - DYSSTASIA [None]
